FAERS Safety Report 13903196 (Version 1)
Quarter: 2017Q3

REPORT INFORMATION
  Report Type: Spontaneous
  Country: US (occurrence: US)
  Receive Date: 20170824
  Receipt Date: 20170824
  Transmission Date: 20171127
  Serious: No
  Sender: FDA-Public Use
  Company Number: US-BRISTOL-MYERS SQUIBB COMPANY-BMS-2017-075937

PATIENT
  Sex: Male

DRUGS (1)
  1. KENALOG-40 [Suspect]
     Active Substance: TRIAMCINOLONE ACETONIDE
     Indication: DIABETIC RETINAL OEDEMA
     Dosage: 2 UNK, UNK
     Route: 047
     Dates: start: 20170706

REACTIONS (5)
  - Non-infectious endophthalmitis [Unknown]
  - Product use issue [Unknown]
  - Visual impairment [Recovering/Resolving]
  - Inflammation [Unknown]
  - Pain [Recovering/Resolving]
